FAERS Safety Report 7238836-4 (Version None)
Quarter: 2011Q1

REPORT INFORMATION
  Report Type: 
  Country: None (occurrence: None)
  Receive Date: 20110121
  Receipt Date: 20110111
  Transmission Date: 20110831
  Serious: Yes (Other)
  Sender: FDA-Public Use
  Company Number: PHEH2009US02559

PATIENT
  Sex: Male

DRUGS (11)
  1. ZOMETA [Suspect]
     Dosage: UNK
     Dates: start: 20020206
  2. INSULIN [Concomitant]
  3. AREDIA [Suspect]
     Dosage: UNK
     Dates: start: 19960604
  4. FAMOTIDINE [Concomitant]
  5. BIAXIN [Concomitant]
  6. THALIDOMIDE [Concomitant]
  7. PROMETHAZINE [Concomitant]
  8. PROCRIT [Concomitant]
  9. ALKERAN [Concomitant]
  10. DECADRON [Concomitant]
  11. DIAZEPAM [Concomitant]

REACTIONS (9)
  - OSTEONECROSIS OF JAW [None]
  - PAIN [None]
  - ANXIETY [None]
  - INJURY [None]
  - DISABILITY [None]
  - ANHEDONIA [None]
  - TOOTHACHE [None]
  - TOOTH DISORDER [None]
  - GINGIVAL SWELLING [None]
